FAERS Safety Report 6987992-1 (Version None)
Quarter: 2010Q3

REPORT INFORMATION
  Report Type: 
  Country: None (occurrence: None)
  Receive Date: 20100916
  Receipt Date: 20100907
  Transmission Date: 20110219
  Serious: Yes (Hospitalization)
  Sender: FDA-Public Use
  Company Number: DK-ABBOTT-10P-044-0668673-00

PATIENT
  Sex: Female

DRUGS (4)
  1. TRANDOLAPRIL [Suspect]
     Indication: HYPERTENSION
  2. TRANDOLAPRIL [Suspect]
     Dosage: DAILY
  3. BENDROFLUMETHIAZIDE AND POTASSIUM [Concomitant]
     Indication: HYPERTENSION
     Dosage: 1 TABLET EVERY DAY
     Route: 048
  4. LEVOTHYROXINE SODIUM [Concomitant]
     Indication: MYXOEDEMA

REACTIONS (4)
  - DYSURIA [None]
  - HYPERTENSION [None]
  - OEDEMA [None]
  - RENAL FAILURE [None]
